FAERS Safety Report 9279251 (Version 1)
Quarter: 2013Q2

REPORT INFORMATION
  Report Type: Spontaneous
  Country: CA (occurrence: CA)
  Receive Date: 20130508
  Receipt Date: 20130508
  Transmission Date: 20140414
  Serious: Yes (Other)
  Sender: FDA-Public Use
  Company Number: CA-BAUSCH-BL-2013-002468

PATIENT
  Age: 59 Year
  Sex: Male

DRUGS (1)
  1. LOTEMAX (LOTEPREDNOL ETABONATE OPHTHALMIC SUSPENSION 0.5%) [Suspect]
     Indication: DRY EYE
     Route: 047
     Dates: start: 20130122, end: 20130205

REACTIONS (3)
  - Intraocular pressure increased [Recovered/Resolved]
  - Vitreous detachment [Unknown]
  - Off label use [Recovered/Resolved]
